FAERS Safety Report 21411542 (Version 1)
Quarter: 2022Q4

REPORT INFORMATION
  Report Type: Spontaneous
  Country: IT (occurrence: IT)
  Receive Date: 20221005
  Receipt Date: 20221005
  Transmission Date: 20230113
  Serious: Yes (Life-Threatening)
  Sender: FDA-Public Use
  Company Number: None

PATIENT
  Age: 2 Day
  Sex: Male
  Weight: 3 kg

DRUGS (1)
  1. FENTANYL [Suspect]
     Active Substance: FENTANYL
     Indication: Analgesic therapy
     Dosage: 1UG/KG/H
     Route: 065
     Dates: start: 20220720, end: 20220722

REACTIONS (2)
  - Bradycardia [Recovered/Resolved with Sequelae]
  - Apnoea [Recovered/Resolved with Sequelae]

NARRATIVE: CASE EVENT DATE: 20220722
